FAERS Safety Report 20691999 (Version 1)
Quarter: 2022Q2

REPORT INFORMATION
  Report Type: Report from Study
  Country: US (occurrence: None)
  Receive Date: 20220408
  Receipt Date: 20220408
  Transmission Date: 20220721
  Serious: Yes (Hospitalization)
  Sender: FDA-Public Use
  Company Number: US-ROCHE-2815487

PATIENT
  Age: 64 Year
  Sex: Female
  Weight: 59.2 kg

DRUGS (5)
  1. ATEZOLIZUMAB [Suspect]
     Active Substance: ATEZOLIZUMAB
     Indication: Non-small cell lung cancer stage IV
     Dosage: DATE OF LAST DOSE OF ATEZOLIZUMAB: 08/JUL/2020
     Route: 042
     Dates: start: 20200506
  2. BEVACIZUMAB [Suspect]
     Active Substance: BEVACIZUMAB
     Indication: Non-small cell lung cancer stage IV
     Dosage: DATE OF LAST DOSE OF BEVACIZUMAB: 17/MAR/2021
     Route: 042
     Dates: start: 20200506
  3. CARBOPLATIN [Suspect]
     Active Substance: CARBOPLATIN
     Indication: Non-small cell lung cancer stage IV
     Dosage: DATE OF LAST DOSE OF CARBOPLATIN: 08/JUL/2020
     Route: 065
     Dates: start: 20200506
  4. PEMETREXED [Suspect]
     Active Substance: PEMETREXED
     Indication: Non-small cell lung cancer stage IV
     Dosage: DATE OF LAST DOSE OF PEMETREXED: 28/OCT/2020
     Route: 065
     Dates: start: 20200506
  5. AMOXICILLIN\CLAVULANATE POTASSIUM [Concomitant]
     Active Substance: AMOXICILLIN\CLAVULANATE POTASSIUM
     Dosage: 875-125 MG. TAKE 1 TABLET BY MOUTH BID FOR 5 DAYS
     Route: 048
     Dates: start: 20210415

REACTIONS (1)
  - Gastroenteritis [Recovered/Resolved]

NARRATIVE: CASE EVENT DATE: 20210411
